FAERS Safety Report 6064894-9 (Version None)
Quarter: 2009Q1

REPORT INFORMATION
  Report Type: 
  Country: None (occurrence: None)
  Receive Date: 20090204
  Receipt Date: 20090202
  Transmission Date: 20090719
  Serious: Yes (Other)
  Sender: FDA-Public Use
  Company Number: US-JNJFOC-20090200680

PATIENT
  Age: 26 Year
  Sex: Female
  Weight: 72.58 kg

DRUGS (2)
  1. ORTHO EVRA [Suspect]
     Route: 062
  2. ORTHO EVRA [Suspect]
     Indication: CONTRACEPTION
     Dosage: NORELGESTROMIN 6MG/ ETHINYL ESTRADIOL 0.6 MG
     Route: 062

REACTIONS (3)
  - ABDOMINAL PAIN UPPER [None]
  - OVARIAN CYST [None]
  - WITHDRAWAL BLEED [None]
